FAERS Safety Report 12363563 (Version 1)
Quarter: 2016Q2

REPORT INFORMATION
  Report Type: Spontaneous
  Country: US (occurrence: US)
  Receive Date: 20160512
  Receipt Date: 20160512
  Transmission Date: 20160815
  Serious: No
  Sender: FDA-Public Use
  Company Number: US-UCBSA-2016007977

PATIENT
  Age: 27 Year
  Sex: Female
  Weight: 74.84 kg

DRUGS (6)
  1. SINGULAIR [Concomitant]
     Active Substance: MONTELUKAST SODIUM
     Indication: ASTHMA
     Dosage: 1 UNK, ONCE DAILY (QD)
     Route: 048
     Dates: start: 2013
  2. PRENATAL VITAMINS [Concomitant]
     Active Substance: VITAMINS
     Indication: PREGNANCY
     Dosage: 1 DF, ONCE DAILY (QD)
     Route: 048
     Dates: start: 201503
  3. CIMZIA [Suspect]
     Active Substance: CERTOLIZUMAB PEGOL
     Indication: CROHN^S DISEASE
     Dosage: 400 MG, EV 4 WEEKS
     Dates: start: 201501
  4. MULTIVITAMIN [Concomitant]
     Active Substance: VITAMINS
     Indication: CROHN^S DISEASE
     Dosage: 1 DF, ONCE DAILY (QD)
     Route: 048
     Dates: start: 2012
  5. IMURAN [Concomitant]
     Active Substance: AZATHIOPRINE
     Indication: CROHN^S DISEASE
     Dosage: 300 MG, ONCE DAILY (QD)
     Route: 048
     Dates: start: 2011, end: 20160225
  6. TYLENOL [Concomitant]
     Active Substance: ACETAMINOPHEN
     Indication: HEADACHE
     Dosage: 1-2 DF, AS NEEDED (PRN)
     Route: 048
     Dates: start: 2009

REACTIONS (1)
  - Pregnancy [Unknown]

NARRATIVE: CASE EVENT DATE: 20160122
